FAERS Safety Report 12380251 (Version 1)
Quarter: 2016Q2

REPORT INFORMATION
  Report Type: Spontaneous
  Country: US (occurrence: None)
  Receive Date: 20160517
  Receipt Date: 20160517
  Transmission Date: 20160815
  Serious: Yes (Other)
  Sender: FDA-Public Use
  Company Number: None

PATIENT
  Age: 18 Year
  Sex: Female
  Weight: 70.31 kg

DRUGS (9)
  1. VITAMIN D3 [Concomitant]
     Active Substance: CHOLECALCIFEROL
  2. CIPROFLOXACIN HCL 500 MG, 500 MG [Suspect]
     Active Substance: CIPROFLOXACIN HYDROCHLORIDE
     Indication: URINARY TRACT INFECTION
     Route: 048
     Dates: start: 20160510, end: 20160513
  3. COQ10 [Concomitant]
     Active Substance: UBIDECARENONE
  4. HYDROCORTISONE. [Concomitant]
     Active Substance: HYDROCORTISONE
  5. ACETYL-L-CARNITINE [Concomitant]
  6. VITAMIN B [Concomitant]
     Active Substance: VITAMIN B
  7. ATENOLOL. [Concomitant]
     Active Substance: ATENOLOL
  8. METFORMIN [Concomitant]
     Active Substance: METFORMIN HYDROCHLORIDE
  9. ALPHA LIPOIC ACID [Concomitant]
     Active Substance: .ALPHA.-LIPOIC ACID

REACTIONS (6)
  - Asthenia [None]
  - Insomnia [None]
  - Hypoaesthesia [None]
  - Dizziness [None]
  - Pain [None]
  - Syncope [None]

NARRATIVE: CASE EVENT DATE: 20160513
